FAERS Safety Report 4417783-7 (Version None)
Quarter: 2004Q3

REPORT INFORMATION
  Report Type: 
  Country: None (occurrence: None)
  Receive Date: 20040803
  Receipt Date: 20040720
  Transmission Date: 20050211
  Serious: Yes (Other)
  Sender: FDA-Public Use
  Company Number: CA-JNJFOC-20040705841

PATIENT
  Age: 53 Year
  Sex: Female
  Weight: 63.6 kg

DRUGS (7)
  1. REMICADE [Suspect]
     Indication: RHEUMATOID ARTHRITIS
     Dosage: 200 MG, INTRAVENOUS
     Route: 042
     Dates: start: 20030219
  2. FERROUS SULFATE (FERROUS SULFATE) TABLETS [Concomitant]
  3. MTX (METHOTREXATE SODIUM) TABLETS [Concomitant]
  4. NEXIUM [Concomitant]
  5. PREDNISONE [Concomitant]
  6. CALCIUM 500D (CALCIUM) [Concomitant]
  7. ACETAMINOPHEN [Concomitant]

REACTIONS (4)
  - DYSPNOEA EXERTIONAL [None]
  - EMPHYSEMA [None]
  - LUNG NEOPLASM [None]
  - TRICUSPID VALVE INCOMPETENCE [None]
